FAERS Safety Report 7522105-9 (Version None)
Quarter: 2011Q2

REPORT INFORMATION
  Report Type: 
  Country: None (occurrence: None)
  Receive Date: 20110520
  Receipt Date: 20110314
  Transmission Date: 20111010
  Serious: Yes (Other)
  Sender: FDA-Public Use
  Company Number: 2011027895

PATIENT
  Age: 53 Year
  Sex: Female
  Weight: 60.3284 kg

DRUGS (11)
  1. SYNTHROID [Concomitant]
  2. RITALIN [Concomitant]
  3. PRESERVISION (OCUVITE /01762701/) [Concomitant]
  4. PRILOSEC [Concomitant]
  5. HIZENTRA [Suspect]
     Indication: IMMUNODEFICIENCY COMMON VARIABLE
     Dosage: (3 G 2X/WEEK, INFUSED 15ML IN ONE SITE TWICE PER WEEK SUBCUTANEOUS)
     Dates: start: 20110224
  6. HIZENTRA [Suspect]
     Indication: IMMUNODEFICIENCY COMMON VARIABLE
     Dosage: (3 G 2X/WEEK, INFUSED 15ML IN ONE SITE TWICE PER WEEK SUBCUTANEOUS)
     Dates: start: 20110310
  7. HIZENTRA [Suspect]
  8. IBUPROFEN [Concomitant]
  9. ALLEGRA [Concomitant]
  10. LIPITOR [Concomitant]
  11. LOESTRIN (ANOVLAR) [Concomitant]

REACTIONS (11)
  - INFUSION SITE ERYTHEMA [None]
  - CHEST PAIN [None]
  - CHEST DISCOMFORT [None]
  - URINARY TRACT INFECTION [None]
  - INFUSION SITE IRRITATION [None]
  - BACK PAIN [None]
  - HEADACHE [None]
  - PAIN IN EXTREMITY [None]
  - INFUSION SITE PAIN [None]
  - PALPITATIONS [None]
  - POLLAKIURIA [None]
